FAERS Safety Report 7441712-5 (Version None)
Quarter: 2011Q2

REPORT INFORMATION
  Report Type: 
  Country: None (occurrence: None)
  Receive Date: 20110428
  Receipt Date: 20110420
  Transmission Date: 20111010
  Serious: Yes (Hospitalization, Other)
  Sender: FDA-Public Use
  Company Number: IR-ROXANE LABORATORIES, INC.-2011-RO-00549RO

PATIENT
  Age: 60 Year
  Sex: Male

DRUGS (8)
  1. NALOXONE [Suspect]
     Indication: DEPRESSED LEVEL OF CONSCIOUSNESS
  2. LIDOCAINE [Suspect]
     Indication: VENTRICULAR TACHYCARDIA
     Route: 042
  3. FLUMAZENIL [Suspect]
     Indication: TOXICITY TO VARIOUS AGENTS
  4. LORAZEPAM [Suspect]
  5. GLYBURIDE [Suspect]
  6. ATORVASTATIN [Suspect]
  7. LIDOCAINE [Suspect]
     Dosage: 100 MG
     Route: 042
  8. NITROCANTINE [Suspect]

REACTIONS (3)
  - VENTRICULAR TACHYCARDIA [None]
  - DRUG INEFFECTIVE [None]
  - TOXICITY TO VARIOUS AGENTS [None]
